FAERS Safety Report 8282323-1 (Version None)
Quarter: 2012Q2

REPORT INFORMATION
  Report Type: 
  Country: None (occurrence: None)
  Receive Date: 20120413
  Receipt Date: 20120413
  Transmission Date: 20120825
  Serious: Yes (Other)
  Sender: FDA-Public Use
  Company Number: None

PATIENT
  Age: 50 Year
  Sex: Male
  Weight: 113.39 kg

DRUGS (1)
  1. ANDROGEL [Suspect]
     Indication: BLOOD TESTOSTERONE DECREASED
     Dosage: 1 PUMP ON EACH FOREARM
     Route: 023
     Dates: start: 20120205, end: 20120406

REACTIONS (2)
  - TESTICULAR DISORDER [None]
  - HYPOTHALAMO-PITUITARY DISORDER [None]
